FAERS Safety Report 10579285 (Version 1)
Quarter: 2014Q4

REPORT INFORMATION
  Report Type: Spontaneous
  Country: IT (occurrence: IT)
  Receive Date: 20141112
  Receipt Date: 20141112
  Transmission Date: 20150529
  Serious: Yes (Other)
  Sender: FDA-Public Use
  Company Number: IT-TEVA-521089ISR

PATIENT
  Age: 45 Year
  Sex: Male

DRUGS (7)
  1. SYCREST 10 MG [Concomitant]
     Dosage: 1 DOSAGE FORMS DAILY;
     Route: 048
  2. CARBOLITHIUM 300 MG [Concomitant]
     Active Substance: LITHIUM CARBONATE
     Dosage: 3 DOSAGE FORMS DAILY;
     Route: 048
  3. RIVOTRIL [Concomitant]
     Active Substance: CLONAZEPAM
     Dosage: 23 GTT DAILY;
     Route: 048
  4. TICLOPIDINA DOROM 250 MG [Suspect]
     Active Substance: TICLOPIDINE
     Dosage: 4 DOSAGE FORMS DAILY;
     Route: 048
     Dates: start: 20140719, end: 20140719
  5. DILTIAZEM DOC GENERICI 120 MG [Suspect]
     Active Substance: DILTIAZEM HYDROCHLORIDE
     Dosage: 6 DOSAGE FORMS DAILY;
     Route: 048
     Dates: start: 20140719, end: 20140719
  6. DEPAKIN 500 MG [Concomitant]
     Dosage: 2 DOSAGE FORMS DAILY;
     Route: 048
  7. SEROQUEL [Concomitant]
     Active Substance: QUETIAPINE FUMARATE
     Dosage: 1 DOSAGE FORMS DAILY;
     Route: 048

REACTIONS (2)
  - Drug abuse [Recovering/Resolving]
  - Intentional self-injury [Recovering/Resolving]

NARRATIVE: CASE EVENT DATE: 20140719
